FAERS Safety Report 12386204 (Version 1)
Quarter: 2016Q2

REPORT INFORMATION
  Report Type: Spontaneous
  Country: FR (occurrence: FR)
  Receive Date: 20160519
  Receipt Date: 20160519
  Transmission Date: 20160815
  Serious: Yes (Hospitalization)
  Sender: FDA-Public Use
  Company Number: FR-ASTRAZENECA-2016SE52375

PATIENT
  Age: 72 Year
  Sex: Female

DRUGS (8)
  1. KARDEGIC [Concomitant]
     Active Substance: ASPIRIN LYSINE
  2. TAHOR [Concomitant]
     Active Substance: ATORVASTATIN CALCIUM
  3. AXELER [Suspect]
     Active Substance: AMLODIPINE BESYLATE\OLMESARTAN MEDOXOMIL
     Indication: HYPERTENSION
     Dosage: 40 MG/10 MG PER DAY
     Route: 065
     Dates: end: 20150725
  4. NEBIVOLOL. [Concomitant]
     Active Substance: NEBIVOLOL
  5. NOVONORM [Concomitant]
     Active Substance: REPAGLINIDE
  6. ALPRAZOLAM. [Concomitant]
     Active Substance: ALPRAZOLAM
  7. INEXIUM [Suspect]
     Active Substance: ESOMEPRAZOLE
     Route: 048
  8. LANTUS [Concomitant]
     Active Substance: INSULIN GLARGINE

REACTIONS (3)
  - Hepatitis [Recovered/Resolved]
  - Colitis [Unknown]
  - Diarrhoea [Recovered/Resolved]

NARRATIVE: CASE EVENT DATE: 201506
